FAERS Safety Report 4333817-2 (Version None)
Quarter: 2004Q2

REPORT INFORMATION
  Report Type: 
  Country: None (occurrence: None)
  Receive Date: 20040406
  Receipt Date: 20040406
  Transmission Date: 20050107
  Serious: Yes (Life-Threatening, Disabling, Other)
  Sender: FDA-Public Use
  Company Number: None

PATIENT
  Sex: Female
  Weight: 95.2554 kg

DRUGS (2)
  1. NARDIL [Suspect]
     Indication: AGORAPHOBIA
     Dosage: 30 MIL TWICE A DA ORAL
     Route: 048
     Dates: start: 20031115, end: 20040405
  2. NARDIL [Suspect]
     Indication: DEPRESSION
     Dosage: 30 MIL TWICE A DA ORAL
     Route: 048
     Dates: start: 20031115, end: 20040405

REACTIONS (3)
  - DEPRESSION [None]
  - DRUG INEFFECTIVE [None]
  - PHARMACEUTICAL PRODUCT COMPLAINT [None]
